FAERS Safety Report 23470566 (Version 2)
Quarter: 2024Q1

REPORT INFORMATION
  Report Type: Spontaneous
  Country: GB (occurrence: GB)
  Receive Date: 20240202
  Receipt Date: 20240227
  Transmission Date: 20240410
  Serious: Yes (Other)
  Sender: FDA-Public Use
  Company Number: GB-MYLANLABS-2024M1005654

PATIENT
  Age: 31 Year
  Sex: Female

DRUGS (2)
  1. CLOZARIL [Suspect]
     Active Substance: CLOZAPINE
     Indication: Product used for unknown indication
     Dosage: UNK
     Route: 048
     Dates: start: 20210415
  2. CLOZARIL [Suspect]
     Active Substance: CLOZAPINE
     Dosage: 3500 MILLIGRAM
     Route: 048
     Dates: start: 20240116

REACTIONS (4)
  - Overdose [Recovered/Resolved]
  - Electrocardiogram abnormal [Unknown]
  - Blood pressure abnormal [Unknown]
  - Body temperature abnormal [Unknown]

NARRATIVE: CASE EVENT DATE: 20240116
